FAERS Safety Report 5577816-1 (Version None)
Quarter: 2007Q4

REPORT INFORMATION
  Report Type: 
  Country: None (occurrence: None)
  Receive Date: 20071130
  Receipt Date: 20070625
  Transmission Date: 20080405
  Serious: No
  Sender: FDA-Public Use
  Company Number: US200707000315

PATIENT
  Age: 57 Year
  Sex: Female

DRUGS (6)
  1. BYETTA [Suspect]
     Indication: TYPE 2 DIABETES MELLITUS
     Dosage: 5 UG, 2/D, SUBCUTANEOUS
     Route: 058
     Dates: start: 20070422
  2. METFORMIN HCL [Concomitant]
  3. GLYBURIDE [Concomitant]
  4. LOTENSIN [Concomitant]
  5. OMEPRAZOLE [Concomitant]
  6. ZETIA [Concomitant]

REACTIONS (4)
  - CHILLS [None]
  - HYPOGLYCAEMIA [None]
  - NAUSEA [None]
  - VOMITING [None]
